FAERS Safety Report 14305574 (Version 1)
Quarter: 2017Q4

REPORT INFORMATION
  Report Type: Report from Study
  Country: KR (occurrence: KR)
  Receive Date: 20171219
  Receipt Date: 20171219
  Transmission Date: 20180321
  Serious: Yes (Other)
  Sender: FDA-Public Use
  Company Number: KR-OTSUKA-JP-2012-13458

PATIENT
  Sex: Male

DRUGS (24)
  1. ORFIL [Concomitant]
     Active Substance: VALPROATE SODIUM
     Dosage: 600 MG, QD
     Route: 048
     Dates: start: 20070916, end: 20071025
  2. PRANOL [Concomitant]
     Dosage: 60 MG, QD
     Route: 048
     Dates: start: 20071114, end: 20071205
  3. PRANOL [Concomitant]
     Dosage: 40 MG, QD
     Route: 048
     Dates: start: 20071206, end: 20071208
  4. URSA [Concomitant]
     Active Substance: URSODIOL
     Dosage: 3 DF, QD
     Route: 048
     Dates: start: 20071107, end: 20071113
  5. ARIPIPRAZOLE. [Suspect]
     Active Substance: ARIPIPRAZOLE
     Dosage: 7.5 MG, QD
     Route: 048
     Dates: start: 20071120, end: 20071208
  6. PRANOL [Concomitant]
     Dosage: 40 MG, QD
     Route: 048
     Dates: start: 20070916, end: 20070930
  7. PRANOL [Concomitant]
     Dosage: 80 MG, QD
     Route: 048
     Dates: start: 20071107, end: 20071113
  8. ARIPIPRAZOLE. [Suspect]
     Active Substance: ARIPIPRAZOLE
     Indication: SCHIZOPHRENIA
     Dosage: 5 MG, QD
     Route: 048
     Dates: start: 20070915, end: 20070915
  9. COGENTIN [Concomitant]
     Active Substance: BENZTROPINE MESYLATE
     Dosage: 1 MG, QD
     Route: 048
     Dates: start: 20070916, end: 20071208
  10. PRANOL [Concomitant]
     Dosage: 80 MG, QD
     Route: 048
     Dates: start: 20071001, end: 20071004
  11. PRANOL [Concomitant]
     Dosage: 120 MG, QD
     Route: 048
     Dates: start: 20071005, end: 20071102
  12. ARIPIPRAZOLE. [Suspect]
     Active Substance: ARIPIPRAZOLE
     Dosage: 15 MG, QD
     Route: 048
     Dates: start: 20070915, end: 20071113
  13. ARIPIPRAZOLE. [Suspect]
     Active Substance: ARIPIPRAZOLE
     Dosage: 10 MG, QD
     Route: 048
     Dates: start: 20070917, end: 20070918
  14. ARIPIPRAZOLE. [Suspect]
     Active Substance: ARIPIPRAZOLE
     Dosage: 17.5 MG, QD
     Route: 048
     Dates: start: 20070921, end: 20070924
  15. ARIPIPRAZOLE. [Suspect]
     Active Substance: ARIPIPRAZOLE
     Dosage: 10 MG, QD
     Route: 048
     Dates: start: 20071114, end: 20071119
  16. VALPROATE SODIUM. [Concomitant]
     Active Substance: VALPROATE SODIUM
     Dosage: UNK
     Dates: start: 20070916, end: 20071208
  17. ARIPIPRAZOLE. [Suspect]
     Active Substance: ARIPIPRAZOLE
     Dosage: 15 MG, QD
     Route: 048
     Dates: start: 20070919, end: 20070920
  18. ARIPIPRAZOLE. [Suspect]
     Active Substance: ARIPIPRAZOLE
     Dosage: 20 MG, QD
     Route: 048
     Dates: start: 20070925, end: 20071013
  19. ORFIL [Concomitant]
     Active Substance: VALPROATE SODIUM
     Dosage: 900 MG, QD
     Route: 048
     Dates: start: 20071026, end: 20071106
  20. ARIPIPRAZOLE. [Suspect]
     Active Substance: ARIPIPRAZOLE
     Dosage: 7.5 MG, QD
     Route: 048
     Dates: start: 20070916, end: 20070916
  21. PRANOL [Concomitant]
     Dosage: 40 MG, QD
     Route: 048
     Dates: start: 20071103, end: 20071106
  22. ORFIL [Concomitant]
     Active Substance: VALPROATE SODIUM
     Dosage: 600 MG, QD
     Route: 048
     Dates: start: 20071107, end: 20071208
  23. URSA [Concomitant]
     Active Substance: URSODIOL
     Dosage: 2 DF, QD
     Route: 048
     Dates: start: 20071114, end: 20071208
  24. PROPRANOLOL HCL [Concomitant]
     Active Substance: PROPRANOLOL HYDROCHLORIDE
     Dosage: UNK
     Dates: start: 20070916, end: 20071208

REACTIONS (1)
  - Hepatocellular injury [Recovered/Resolved]

NARRATIVE: CASE EVENT DATE: 20071031
